FAERS Safety Report 9235340 (Version 2)
Quarter: 2013Q2

REPORT INFORMATION
  Report Type: Spontaneous
  Country: US (occurrence: US)
  Receive Date: 20130417
  Receipt Date: 20130517
  Transmission Date: 20140414
  Serious: No
  Sender: FDA-Public Use
  Company Number: US-BIOGENIDEC-2013BI033427

PATIENT
  Age: 43 Year
  Sex: Female

DRUGS (1)
  1. TYSABRI [Suspect]
     Indication: PRODUCT USED FOR UNKNOWN INDICATION
     Route: 042
     Dates: start: 20130111, end: 20130207

REACTIONS (4)
  - Neck pain [Not Recovered/Not Resolved]
  - Syncope [Recovered/Resolved]
  - Paraesthesia [Not Recovered/Not Resolved]
  - Blood pressure decreased [Recovered/Resolved]
